FAERS Safety Report 6125432-5 (Version None)
Quarter: 2009Q1

REPORT INFORMATION
  Report Type: 
  Country: None (occurrence: None)
  Receive Date: 20090319
  Receipt Date: 20090319
  Transmission Date: 20090719
  Serious: Yes (Hospitalization)
  Sender: FDA-Public Use
  Company Number: None

PATIENT
  Age: 77 Year
  Sex: Male

DRUGS (1)
  1. DOXAZOSIN MESYLATE [Suspect]
     Indication: BENIGN PROSTATIC HYPERPLASIA
     Dosage: 4 MG EVERY DAY PO
     Route: 048
     Dates: start: 20081229, end: 20090206

REACTIONS (3)
  - ANKLE FRACTURE [None]
  - FALL [None]
  - HYPOTENSION [None]
